FAERS Safety Report 5831161-5 (Version None)
Quarter: 2008Q3

REPORT INFORMATION
  Report Type: 
  Country: None (occurrence: None)
  Receive Date: 20080801
  Receipt Date: 20080506
  Transmission Date: 20090109
  Serious: Yes (Other)
  Sender: FDA-Public Use
  Company Number: US-BRISTOL-MYERS SQUIBB COMPANY-14177984

PATIENT
  Age: 75 Year
  Sex: Female
  Weight: 67 kg

DRUGS (9)
  1. COUMADIN [Suspect]
     Dosage: INTERRUPTED FOR 2 DAYS 08APR2008 AND 09APR2008. 1.5MG 3 DAYS AND 3MG 2 DAYS A WEEK
     Dates: start: 20080304
  2. HEPARIN [Concomitant]
  3. ZEBETA [Concomitant]
  4. LIPITOR [Concomitant]
  5. ANTIVERT [Concomitant]
  6. ASPIRIN [Concomitant]
  7. CENTRUM SILVER [Concomitant]
  8. CALTRATE + D [Concomitant]
  9. ESTER-C [Concomitant]

REACTIONS (3)
  - BREAST PAIN [None]
  - EYE HAEMORRHAGE [None]
  - INTERNATIONAL NORMALISED RATIO INCREASED [None]
